FAERS Safety Report 21908662 (Version 1)
Quarter: 2023Q1

REPORT INFORMATION
  Report Type: Other
  Country: MA (occurrence: None)
  Receive Date: 20230125
  Receipt Date: 20230125
  Transmission Date: 20230418
  Serious: Yes (Other)
  Sender: FDA-Public Use
  Company Number: MA-ROCHE-3268907

PATIENT

DRUGS (1)
  1. CAPECITABINE [Suspect]
     Active Substance: CAPECITABINE
     Indication: Neoplasm malignant
     Route: 048

REACTIONS (18)
  - Febrile neutropenia [Unknown]
  - Rectal haemorrhage [Unknown]
  - Fatigue [Unknown]
  - Paraesthesia [Unknown]
  - Weight decreased [Unknown]
  - Nausea [Unknown]
  - Headache [Unknown]
  - Dizziness [Unknown]
  - Pain in extremity [Unknown]
  - Palmar-plantar erythrodysaesthesia syndrome [Unknown]
  - Dry skin [Unknown]
  - Skin discolouration [Unknown]
  - Pruritus [Unknown]
  - Abdominal pain upper [Unknown]
  - Constipation [Unknown]
  - Mucosal inflammation [Unknown]
  - Gingivitis [Unknown]
  - Nail infection [Unknown]
